FAERS Safety Report 16108991 (Version 1)
Quarter: 2019Q1

REPORT INFORMATION
  Report Type: Spontaneous
  Country: US (occurrence: US)
  Receive Date: 20190323
  Receipt Date: 20190323
  Transmission Date: 20190418
  Serious: No
  Sender: FDA-Public Use
  Company Number: US-THERAPEUTICSMD-2018TMD00509

PATIENT
  Age: 55 Year
  Sex: Female
  Weight: 82.99 kg

DRUGS (7)
  1. IMVEXXY [Suspect]
     Active Substance: ESTRADIOL
     Dosage: 10 ?G, 2X/WEEK AT BEDTIME
     Route: 067
     Dates: start: 20181215, end: 20181227
  2. LOSARTAN. [Concomitant]
     Active Substance: LOSARTAN
  3. XIIDRA [Concomitant]
     Active Substance: LIFITEGRAST
  4. IMVEXXY [Suspect]
     Active Substance: ESTRADIOL
     Indication: DYSPAREUNIA
     Dosage: 10 ?G, 1X/DAYAT BEDTIME
     Route: 067
     Dates: start: 20181203, end: 20181214
  5. SOME NATURAL THINGS [Concomitant]
  6. 2 THYROID MEDICATIONS (UNSPECIFIED) [Concomitant]
  7. FLONASE [Concomitant]
     Active Substance: FLUTICASONE PROPIONATE

REACTIONS (5)
  - Breast pain [Recovered/Resolved]
  - Breast tenderness [Recovered/Resolved]
  - Blood pressure increased [Unknown]
  - Headache [Recovered/Resolved]
  - Vaginal haemorrhage [Recovered/Resolved]

NARRATIVE: CASE EVENT DATE: 201812
